FAERS Safety Report 4986768-4 (Version None)
Quarter: 2006Q2

REPORT INFORMATION
  Report Type: 
  Country: None (occurrence: None)
  Receive Date: 20060428
  Receipt Date: 20050426
  Transmission Date: 20061013
  Serious: Yes (Hospitalization)
  Sender: FDA-Public Use
  Company Number: US-MERCK-0504USA04602

PATIENT
  Age: 66 Year
  Sex: Female
  Weight: 70 kg

DRUGS (2)
  1. VIOXX [Suspect]
     Indication: ARTHRITIS
     Route: 048
     Dates: start: 20000301, end: 20020101
  2. TYLENOL (CAPLET) [Concomitant]
     Route: 065

REACTIONS (4)
  - AORTIC BYPASS [None]
  - CEREBROVASCULAR ACCIDENT [None]
  - HERNIA [None]
  - LUNG OPERATION [None]
